FAERS Safety Report 21877039 (Version 2)
Quarter: 2023Q1

REPORT INFORMATION
  Report Type: Spontaneous
  Country: DE (occurrence: DE)
  Receive Date: 20230118
  Receipt Date: 20230127
  Transmission Date: 20230418
  Serious: Yes (Life-Threatening)
  Sender: FDA-Public Use
  Company Number: DE-BoehringerIngelheim-2023-BI-212821

PATIENT
  Age: 69 Year
  Sex: Male

DRUGS (5)
  1. ALTEPLASE [Suspect]
     Active Substance: ALTEPLASE
     Indication: Cerebral infarction
     Route: 042
     Dates: start: 20230110, end: 20230110
  2. ALTEPLASE [Suspect]
     Active Substance: ALTEPLASE
     Indication: Hemiparesis
     Route: 042
     Dates: start: 20230110, end: 20230110
  3. ALTEPLASE [Suspect]
     Active Substance: ALTEPLASE
     Indication: Hypoaesthesia
     Route: 065
  4. URAPIDIL [Concomitant]
     Active Substance: URAPIDIL
     Indication: Product used for unknown indication
     Route: 042
  5. ATROPINE [Concomitant]
     Active Substance: ATROPINE
     Indication: Product used for unknown indication
     Dosage: 0.5 MG AMPOULE

REACTIONS (9)
  - Anaphylactic reaction [Unknown]
  - Blood pressure increased [Unknown]
  - Nausea [Unknown]
  - Disturbance in attention [Unknown]
  - Bradycardia [Unknown]
  - Hypotension [Unknown]
  - Cardiac arrest [Unknown]
  - Loss of consciousness [Unknown]
  - Enuresis [Unknown]

NARRATIVE: CASE EVENT DATE: 20230110
